FAERS Safety Report 12056796 (Version 1)
Quarter: 2016Q1

REPORT INFORMATION
  Report Type: Spontaneous
  Country: US (occurrence: US)
  Receive Date: 20160209
  Receipt Date: 20160209
  Transmission Date: 20160526
  Serious: No
  Sender: FDA-Public Use
  Company Number: US-GLAXOSMITHKLINE-US2016015298

PATIENT
  Age: 81 Year
  Sex: Female

DRUGS (13)
  1. ANORO ELLIPTA [Suspect]
     Active Substance: UMECLIDINIUM BROMIDE\VILANTEROL TRIFENATATE
     Indication: CHRONIC OBSTRUCTIVE PULMONARY DISEASE
     Dosage: 1 PUFF(S), QD
     Route: 055
     Dates: start: 20160102
  2. NORVASC [Concomitant]
     Active Substance: AMLODIPINE BESYLATE
  3. SYNTHROID [Concomitant]
     Active Substance: LEVOTHYROXINE SODIUM
  4. LASIX [Concomitant]
     Active Substance: FUROSEMIDE
  5. XANAX [Concomitant]
     Active Substance: ALPRAZOLAM
  6. GABAPENTIN. [Concomitant]
     Active Substance: GABAPENTIN
  7. SIMVASTATIN. [Concomitant]
     Active Substance: SIMVASTATIN
  8. CITALOPRAM [Concomitant]
     Active Substance: CITALOPRAM HYDROBROMIDE
  9. EPIPEN (ADRENALIN) [Concomitant]
  10. CARDIZEM [Concomitant]
     Active Substance: DILTIAZEM HYDROCHLORIDE
  11. ELAVIL (ALLOPURINOL) [Concomitant]
  12. ESTRACE [Concomitant]
     Active Substance: ESTRADIOL
  13. VITAMIN D INJECTION [Concomitant]

REACTIONS (2)
  - Urinary tract infection [Not Recovered/Not Resolved]
  - Fungal infection [Not Recovered/Not Resolved]

NARRATIVE: CASE EVENT DATE: 20160129
